FAERS Safety Report 6070712-5 (Version None)
Quarter: 2009Q1

REPORT INFORMATION
  Report Type: 
  Country: None (occurrence: None)
  Receive Date: 20090209
  Receipt Date: 20090128
  Transmission Date: 20090719
  Serious: Yes (Life-Threatening, Hospitalization)
  Sender: FDA-Public Use
  Company Number: RU-ROCHE-605002

PATIENT
  Sex: Male

DRUGS (6)
  1. PEGASYS [Suspect]
     Indication: HEPATITIS C
     Route: 058
     Dates: start: 20080718, end: 20081121
  2. REBETOL [Concomitant]
     Indication: HEPATITIS C
     Route: 048
     Dates: start: 20080904, end: 20081126
  3. PROSTATE EXTRACT [Concomitant]
     Dosage: DRUG: PROSTATILEN (PROSTATE EXTRACT)
     Route: 030
     Dates: start: 20081110, end: 20081123
  4. MACROPEN [Concomitant]
     Route: 048
     Dates: start: 20081110, end: 20081120
  5. THIAMINE HCL [Concomitant]
     Route: 030
  6. ASCORBIC ACID [Concomitant]
     Dates: start: 20081110, end: 20081123

REACTIONS (7)
  - ABNORMAL FAECES [None]
  - EPISTAXIS [None]
  - GINGIVAL BLEEDING [None]
  - HAEMATURIA [None]
  - HAEMORRHAGE [None]
  - PURPURA [None]
  - THROMBOCYTOPENIA [None]
